FAERS Safety Report 19596054 (Version 2)
Quarter: 2022Q1

REPORT INFORMATION
  Report Type: Spontaneous
  Country: US (occurrence: US)
  Receive Date: 20210723
  Receipt Date: 20220301
  Transmission Date: 20220423
  Serious: No
  Sender: FDA-Public Use
  Company Number: US-SA-SAC20210721001425

PATIENT
  Sex: Female

DRUGS (1)
  1. DUPIXENT [Suspect]
     Active Substance: DUPILUMAB
     Indication: Asthma
     Dosage: 200 MG, QOW
     Route: 058
     Dates: start: 20210513

REACTIONS (4)
  - Injection site erythema [Recovered/Resolved]
  - Injection site pruritus [Unknown]
  - Dyspnoea [Unknown]
  - Therapeutic response shortened [Unknown]
